FAERS Safety Report 10368523 (Version 1)
Quarter: 2014Q1

REPORT INFORMATION
  Report Type: Spontaneous
  Country: US (occurrence: None)
  Receive Date: 20140306
  Receipt Date: 20140306
  Transmission Date: 20141002
  Serious: Yes (Hospitalization)
  Sender: FDA-Public Use
  Company Number: 163-21880-13071669

PATIENT
  Age: 88 Year
  Sex: Female

DRUGS (9)
  1. REVLIMID (LENALIDOMIDE) (5 MILLIGRAM, CAPSULES) [Suspect]
     Indication: PLASMA CELL MYELOMA
     Route: 048
     Dates: start: 20130422
  2. ALPRAZOLAM (UNKNOWN) [Concomitant]
  3. ASPIRIN LOW DOSE (ACETYLSALICYLIC ACID) (UNKNOWN) [Concomitant]
  4. CELEBREX (CELECOXIB) (UNKNOWN) [Concomitant]
  5. CLONIDINE HCL (CLONIDINE HYDROCHLORIDE) (UNKNOWN) [Concomitant]
  6. DEXAMETHASONE (UNKNOWN) [Concomitant]
  7. DILTIAZEM HCL CD (DILTIAZEM HYDROCHLORIDE) (UNKNOWN) [Concomitant]
  8. FLUOXETINE HCL (FLUOXETINE HYDROCHLORIDE) (UNKNOWN) [Concomitant]
  9. LIPITOR (ATORVASTATIN) (UNKNOWN) [Concomitant]

REACTIONS (2)
  - Gastritis [None]
  - Diverticulitis [None]
